FAERS Safety Report 21457774 (Version 8)
Quarter: 2023Q4

REPORT INFORMATION
  Report Type: Spontaneous
  Country: US (occurrence: US)
  Receive Date: 20221014
  Receipt Date: 20231218
  Transmission Date: 20240110
  Serious: Yes (Hospitalization, Other)
  Sender: FDA-Public Use
  Company Number: US-PFIZER INC-PV202200082238

PATIENT
  Age: 50 Year
  Sex: Female

DRUGS (3)
  1. XELJANZ [Suspect]
     Active Substance: TOFACITINIB CITRATE
     Indication: Rheumatoid arthritis
     Dosage: 5 MG, 2X/DAY
     Route: 048
     Dates: start: 202209
  2. XELJANZ [Suspect]
     Active Substance: TOFACITINIB CITRATE
     Dosage: 5 MG, 1X/DAY
     Route: 048
     Dates: start: 202209, end: 202302
  3. XELJANZ [Suspect]
     Active Substance: TOFACITINIB CITRATE
     Dosage: 5 MG, 2X/DAY
     Route: 048
     Dates: start: 202303

REACTIONS (32)
  - Knee arthroplasty [Recovered/Resolved]
  - Cerebrovascular accident [Unknown]
  - Neuropathy peripheral [Unknown]
  - Cerebral infarction [Unknown]
  - Transient ischaemic attack [Unknown]
  - Bladder neoplasm [Unknown]
  - Upper respiratory tract infection [Unknown]
  - Therapeutic product effect incomplete [Unknown]
  - Nervous system disorder [Unknown]
  - Nasopharyngitis [Unknown]
  - Arthralgia [Unknown]
  - Headache [Not Recovered/Not Resolved]
  - Dizziness [Not Recovered/Not Resolved]
  - Balance disorder [Not Recovered/Not Resolved]
  - Lipids increased [Unknown]
  - Blood cholesterol increased [Unknown]
  - Blood glucose abnormal [Unknown]
  - Memory impairment [Not Recovered/Not Resolved]
  - Condition aggravated [Unknown]
  - Swelling [Recovering/Resolving]
  - Joint stiffness [Not Recovered/Not Resolved]
  - Arteriosclerosis [Unknown]
  - Inflammation [Unknown]
  - Blood glucose decreased [Not Recovered/Not Resolved]
  - Vomiting [Unknown]
  - Abdominal pain upper [Not Recovered/Not Resolved]
  - Stress [Unknown]
  - Off label use [Unknown]
  - Intentional product misuse [Unknown]
  - Product dose omission in error [Unknown]
  - Arthralgia [Unknown]
  - Muscle spasms [Not Recovered/Not Resolved]

NARRATIVE: CASE EVENT DATE: 20220101
